FAERS Safety Report 7952538-8 (Version None)
Quarter: 2011Q4

REPORT INFORMATION
  Report Type: 
  Country: None (occurrence: None)
  Receive Date: 20111201
  Receipt Date: 20111128
  Transmission Date: 20120403
  Serious: Yes (Death)
  Sender: FDA-Public Use
  Company Number: PHHY2011JP104327

PATIENT
  Age: 59 Year
  Sex: Male

DRUGS (3)
  1. CISPLATIN [Suspect]
     Indication: OESOPHAGEAL CARCINOMA
  2. FLUOROURACIL [Suspect]
     Indication: OESOPHAGEAL CARCINOMA
  3. RADIOTHERAPY [Suspect]
     Indication: OESOPHAGEAL CARCINOMA
     Dosage: 2 GY, UNK

REACTIONS (2)
  - HAEMORRHAGE [None]
  - AORTO-OESOPHAGEAL FISTULA [None]
